FAERS Safety Report 16347095 (Version 1)
Quarter: 2019Q2

REPORT INFORMATION
  Report Type: Spontaneous
  Country: RO (occurrence: RO)
  Receive Date: 20190523
  Receipt Date: 20190523
  Transmission Date: 20190711
  Serious: Yes (Death)
  Sender: FDA-Public Use
  Company Number: RO-ROCHE-2322888

PATIENT
  Age: 42 Year
  Sex: Female

DRUGS (3)
  1. AVASTIN [Suspect]
     Active Substance: BEVACIZUMAB
     Indication: BREAST CANCER METASTATIC
     Dosage: NO
     Route: 065
     Dates: start: 201203, end: 201208
  2. AVASTIN [Suspect]
     Active Substance: BEVACIZUMAB
     Dosage: NO
     Route: 065
     Dates: start: 201208, end: 201211
  3. PACLITAXEL. [Concomitant]
     Active Substance: PACLITAXEL
     Indication: BREAST CANCER METASTATIC
     Route: 065
     Dates: start: 201203, end: 201208

REACTIONS (2)
  - Death [Fatal]
  - Neurotoxicity [Unknown]

NARRATIVE: CASE EVENT DATE: 201302
